FAERS Safety Report 10112287 (Version 1)
Quarter: 2014Q2

REPORT INFORMATION
  Report Type: Report from Study
  Country: US (occurrence: US)
  Receive Date: 20140425
  Receipt Date: 20140425
  Transmission Date: 20141212
  Serious: Yes (Hospitalization)
  Sender: FDA-Public Use
  Company Number: US-BRISTOL-MYERS SQUIBB COMPANY-20651170

PATIENT
  Age: 65 Year
  Sex: Male
  Weight: 79.6 kg

DRUGS (4)
  1. BELATACEPT [Suspect]
     Indication: RENAL TRANSPLANT
     Route: 042
     Dates: start: 20140316
  2. MYCOPHENOLATE MOFETIL [Suspect]
     Indication: RENAL TRANSPLANT
     Route: 048
     Dates: start: 20140316
  3. ALEMTUZUMAB [Concomitant]
     Dates: start: 20140316
  4. METHYLPREDNISONE [Concomitant]
     Dates: start: 20140316

REACTIONS (2)
  - Abdominal pain lower [Unknown]
  - Chest pain [Unknown]
